FAERS Safety Report 7754399-9 (Version None)
Quarter: 2011Q3

REPORT INFORMATION
  Report Type: 
  Country: None (occurrence: None)
  Receive Date: 20110915
  Receipt Date: 20110906
  Transmission Date: 20111222
  Serious: Yes (Hospitalization, Other)
  Sender: FDA-Public Use
  Company Number: US-ASTRAZENECA-2011SE47082

PATIENT
  Age: 79 Year
  Sex: Female

DRUGS (12)
  1. ATACAND [Suspect]
     Route: 048
  2. NEXIUM [Suspect]
     Route: 048
  3. ALBUTEROL [Concomitant]
     Dosage: 90 MCG AS NEEDED
     Route: 065
  4. ASPIRIN [Concomitant]
     Route: 048
  5. ATACAND [Suspect]
     Route: 048
  6. SPIRIVA [Concomitant]
     Dosage: 18 MCG
     Route: 065
  7. COREG [Concomitant]
     Route: 048
  8. PLAVIX [Concomitant]
     Route: 048
  9. NITROSTAT [Concomitant]
     Indication: ANGINA PECTORIS
     Dosage: ONE TAB AS NEEDED UPTO THREE TIMES
     Route: 060
  10. LIPITOR [Concomitant]
     Route: 048
  11. MULTI-VITAMIN [Concomitant]
     Route: 048
  12. VITAMIN D [Concomitant]
     Dosage: 2500 UNITS DAILY
     Route: 065

REACTIONS (12)
  - TRANSIENT ISCHAEMIC ATTACK [None]
  - CORONARY ARTERY DISEASE [None]
  - MYOCARDIAL INFARCTION [None]
  - THROMBOSIS IN DEVICE [None]
  - ACUTE CORONARY SYNDROME [None]
  - MALAISE [None]
  - HYPERTENSION [None]
  - LIMB DISCOMFORT [None]
  - HYPERLIPIDAEMIA [None]
  - CHEST DISCOMFORT [None]
  - AMNESIA [None]
  - ACUTE MYOCARDIAL INFARCTION [None]
